FAERS Safety Report 6139304-3 (Version None)
Quarter: 2009Q2

REPORT INFORMATION
  Report Type: 
  Country: None (occurrence: None)
  Receive Date: 20090401
  Receipt Date: 20090319
  Transmission Date: 20091009
  Serious: Yes (Hospitalization)
  Sender: FDA-Public Use
  Company Number: SK-AMGEN-US339311

PATIENT
  Age: 29 Year
  Sex: Male

DRUGS (1)
  1. ENBREL [Suspect]
     Indication: PSORIASIS
     Dosage: UNKNOWN
     Route: 058
     Dates: start: 20080101, end: 20081001

REACTIONS (6)
  - CONDITION AGGRAVATED [None]
  - DEMYELINATION [None]
  - LYMPHADENOPATHY [None]
  - PSORIASIS [None]
  - VOMITING [None]
  - WEIGHT DECREASED [None]
